FAERS Safety Report 19909135 (Version 1)
Quarter: 2021Q4

REPORT INFORMATION
  Report Type: Report from Study
  Country: US (occurrence: US)
  Receive Date: 20211002
  Receipt Date: 20211002
  Transmission Date: 20220303
  Serious: Yes (Hospitalization, Other)
  Sender: FDA-Public Use
  Company Number: US-SHIRE-US202021299

PATIENT
  Sex: Female

DRUGS (3)
  1. GAMMAGARD S/D [Suspect]
     Active Substance: HUMAN IMMUNOGLOBULIN G
     Indication: Primary immunodeficiency syndrome
     Dosage: 15 GRAM, 1X/2WKS
     Route: 042
  2. GAMMAGARD S/D [Suspect]
     Active Substance: HUMAN IMMUNOGLOBULIN G
     Indication: Primary immunodeficiency syndrome
     Dosage: 15 GRAM, 1X/2WKS
     Route: 042
  3. PREDNISONE [Suspect]
     Active Substance: PREDNISONE
     Indication: Diarrhoea
     Route: 065

REACTIONS (13)
  - Illness [Unknown]
  - Cataract [Unknown]
  - Haemorrhage [Unknown]
  - Skin abrasion [Unknown]
  - Fall [Unknown]
  - Skin atrophy [Unknown]
  - Skin disorder [Unknown]
  - Hypoacusis [Unknown]
  - Mental impairment [Unknown]
  - Visual impairment [Unknown]
  - Diarrhoea [Unknown]
  - Weight decreased [Unknown]
  - Immunoglobulins decreased [Unknown]
